FAERS Safety Report 5764322-4 (Version None)
Quarter: 2008Q2

REPORT INFORMATION
  Report Type: 
  Country: None (occurrence: None)
  Receive Date: 20080610
  Receipt Date: 20080603
  Transmission Date: 20081010
  Serious: Yes (Other)
  Sender: FDA-Public Use
  Company Number: NL-BOEHRINGER INGELHEIM GMBH, GERMANY-2008-NL-00317NL

PATIENT
  Sex: Female

DRUGS (10)
  1. SIFROL 0.088MG [Suspect]
     Indication: RESTLESS LEGS SYNDROME
     Dates: start: 20080229, end: 20080401
  2. SIFROL 0.088MG [Suspect]
     Dates: start: 20080401, end: 20080509
  3. NOVORAPID [Suspect]
     Indication: DIABETES MELLITUS
     Dosage: ACCORDING TO SCHEDULE; CHRONICALLY
     Route: 042
  4. LANTUS [Suspect]
     Indication: DIABETES MELLITUS
     Dosage: ACCORDING TO SCHEDULE; CHRONICALLY
  5. SINGULAIR [Concomitant]
     Dosage: 1DD 10MG, USED CHONICALLY
     Dates: start: 20071227
  6. SANDOSTATIN [Concomitant]
     Dosage: STRENGTH: 10MG+ SOLV 2ML
  7. PARACETAMOL/CODEINEFOSFAAT [Concomitant]
     Dosage: STRENGTH: 500/10MG
  8. NEXIUM [Concomitant]
     Dates: start: 20080412
  9. LANETTE CREME [Concomitant]
     Dosage: APPLY THIN
     Dates: start: 20080418
  10. XALATAN [Concomitant]
     Dosage: 50MCG/2.5ML AT NIGHT
     Dates: start: 20071231

REACTIONS (2)
  - DRUG INTERACTION [None]
  - HYPOGLYCAEMIA [None]
